FAERS Safety Report 19640372 (Version 2)
Quarter: 2021Q3

REPORT INFORMATION
  Report Type: Report from Study
  Country: DE (occurrence: DE)
  Receive Date: 20210730
  Receipt Date: 20210810
  Transmission Date: 20211014
  Serious: Yes (Hospitalization)
  Sender: FDA-Public Use
  Company Number: DE-EXELIXIS-XL18421042861

PATIENT

DRUGS (2)
  1. NOVALGIN [Concomitant]
     Indication: ADVERSE EVENT
  2. XL184 [Suspect]
     Active Substance: CABOZANTINIB
     Indication: HEPATOCELLULAR CARCINOMA
     Dosage: UNK
     Dates: start: 20210709, end: 20210723

REACTIONS (1)
  - Urosepsis [Not Recovered/Not Resolved]

NARRATIVE: CASE EVENT DATE: 20210722
